FAERS Safety Report 8819881 (Version 2)
Quarter: 2012Q4

REPORT INFORMATION
  Report Type: 
  Country: US (occurrence: US)
  Receive Date: 20121001
  Receipt Date: 20121107
  Transmission Date: 20130627
  Serious: No
  Sender: FDA-Public Use
  Company Number: US-ASTRAZENECA-2012SE74175

PATIENT
  Age: 92 Year
  Sex: Female

DRUGS (1)
  1. SYMBICORT PMDI [Suspect]
     Dosage: DOSE AND FREQUENCY UNKNOWN
     Route: 055

REACTIONS (6)
  - Dyspnoea [Unknown]
  - Oral disorder [Unknown]
  - Hypoacusis [Unknown]
  - Dysstasia [Unknown]
  - Visual impairment [Unknown]
  - Drug dose omission [Unknown]
